FAERS Safety Report 8620701 (Version 3)
Quarter: 2012Q4

REPORT INFORMATION
  Report Type: 
  Country: US (occurrence: US)
  Receive Date: 20120618
  Receipt Date: 20120901
  Transmission Date: 20130627
  Serious: Yes (Other)
  Sender: FDA-Public Use
  Company Number: US-TEVA-342340USA

PATIENT
  Age: 41 Year
  Sex: Female

DRUGS (1)
  1. COPAXONE [Suspect]
     Indication: MULTIPLE SCLEROSIS
     Route: 058
     Dates: end: 201205

REACTIONS (12)
  - Convulsion [Recovered/Resolved]
  - Flushing [Unknown]
  - Palpitations [Unknown]
  - Concussion [Unknown]
  - Balance disorder [Unknown]
  - Visual field defect [Unknown]
  - Fatigue [Unknown]
  - Muscular weakness [Unknown]
  - Chest discomfort [Unknown]
  - Loss of consciousness [Recovered/Resolved]
  - Contusion [Recovered/Resolved]
  - Fall [Recovered/Resolved]
